FAERS Safety Report 11316998 (Version 1)
Quarter: 2015Q3

REPORT INFORMATION
  Report Type: Spontaneous
  Country: AT (occurrence: AT)
  Receive Date: 20150728
  Receipt Date: 20150728
  Transmission Date: 20151125
  Serious: Yes (Death, Hospitalization)
  Sender: FDA-Public Use
  Company Number: AT-ASTRAZENECA-2015SE71464

PATIENT
  Age: 60 Year
  Sex: Male

DRUGS (1)
  1. FORXIGA [Suspect]
     Active Substance: DAPAGLIFLOZIN
     Route: 048

REACTIONS (2)
  - Pneumonia [Unknown]
  - Myocardial infarction [Fatal]
